FAERS Safety Report 6095116-0 (Version None)
Quarter: 2009Q1

REPORT INFORMATION
  Report Type: 
  Country: None (occurrence: None)
  Receive Date: 20090227
  Receipt Date: 20080122
  Transmission Date: 20090719
  Serious: No
  Sender: FDA-Public Use
  Company Number: A0704618A

PATIENT
  Age: 15 Year
  Sex: Female

DRUGS (3)
  1. LAMICTAL [Suspect]
     Indication: BIPOLAR DISORDER
     Dosage: 100MG PER DAY
     Route: 048
     Dates: start: 20061001
  2. BIRTH CONTROL [Concomitant]
  3. ADVAIR HFA [Concomitant]

REACTIONS (2)
  - DRY SKIN [None]
  - LOCAL SWELLING [None]
